FAERS Safety Report 6727563-5 (Version None)
Quarter: 2010Q2

REPORT INFORMATION
  Report Type: 
  Country: None (occurrence: None)
  Receive Date: 20100517
  Receipt Date: 20100507
  Transmission Date: 20101027
  Serious: Yes (Hospitalization, Other)
  Sender: FDA-Public Use
  Company Number: PHHY2008JP23684

PATIENT
  Sex: Male

DRUGS (3)
  1. ZOLEDRONATE T29581+ [Suspect]
     Indication: METASTASES TO BONE
     Dosage: 4 MG, QMO
     Route: 042
     Dates: start: 20070721, end: 20080820
  2. DECADRON [Concomitant]
     Dosage: 1 MG, UNK
     Route: 048
     Dates: start: 20070721, end: 20080820
  3. FLIVAS [Concomitant]
     Dosage: 80 MG, UNK
     Route: 048
     Dates: start: 20070721, end: 20080820

REACTIONS (6)
  - BLOOD CALCIUM DECREASED [None]
  - DISEASE PROGRESSION [None]
  - DYSURIA [None]
  - OSTEONECROSIS OF JAW [None]
  - SURGERY [None]
  - TOOTH EXTRACTION [None]
